FAERS Safety Report 5417048-0 (Version None)
Quarter: 2007Q3

REPORT INFORMATION
  Report Type: 
  Country: None (occurrence: None)
  Receive Date: 20070816
  Receipt Date: 20070813
  Transmission Date: 20080115
  Serious: Yes (Hospitalization, Other)
  Sender: FDA-Public Use
  Company Number: BR-BRACCO-BRO-011953

PATIENT

DRUGS (1)
  1. IOPAMIRON [Suspect]
     Route: 042

REACTIONS (2)
  - HEPATITIS [None]
  - HYPERSENSITIVITY [None]
